FAERS Safety Report 8542450-8 (Version None)
Quarter: 2012Q3

REPORT INFORMATION
  Report Type: 
  Country: None (occurrence: None)
  Receive Date: 20120726
  Receipt Date: 20110720
  Transmission Date: 20120928
  Serious: Yes (Other)
  Sender: FDA-Public Use
  Company Number: US-ASTRAZENECA-2007UW27340

PATIENT
  Age: 589 Month
  Sex: Female

DRUGS (15)
  1. RISPERDAL [Concomitant]
     Route: 048
     Dates: start: 20040615
  2. RANITIDINE [Concomitant]
     Indication: GASTRIC DISORDER
     Dates: start: 20050622
  3. BACTRIM DS [Concomitant]
     Dosage: BID X 10 DAYS
     Dates: start: 20050622
  4. BENZTROPINE MESYLATE [Concomitant]
  5. FLUCONAZOLE [Concomitant]
     Dosage: 150 MG X1
     Dates: start: 20050622
  6. ALTRAZOLAM [Concomitant]
     Dates: start: 20010101
  7. SEROQUEL [Suspect]
     Dosage: 25MG, 200MG AND 300MG
     Route: 048
     Dates: start: 20040701, end: 20070901
  8. MEGESTROL AC [Concomitant]
     Dates: start: 20050622
  9. HALDOL [Concomitant]
     Route: 048
     Dates: start: 20060822
  10. SEROQUEL [Suspect]
     Indication: BIPOLAR DISORDER
     Dosage: 100-400 MG
     Route: 048
     Dates: start: 19990617, end: 20070807
  11. SEROQUEL [Suspect]
     Indication: DEPRESSION
     Dosage: 100-400 MG
     Route: 048
     Dates: start: 19990617, end: 20070807
  12. RISPERDAL [Concomitant]
  13. SEROQUEL [Suspect]
     Dosage: 25MG, 200MG AND 300MG
     Route: 048
     Dates: start: 20040701, end: 20070901
  14. LISINOPRIL [Concomitant]
     Route: 048
     Dates: start: 20050912
  15. NITROGLYCERIN [Concomitant]
     Dosage: PO QID X 4 DAYS
     Dates: start: 20050622

REACTIONS (4)
  - PANCREATITIS [None]
  - HYPERLIPIDAEMIA [None]
  - TYPE 2 DIABETES MELLITUS [None]
  - BLOOD CHOLESTEROL INCREASED [None]
